FAERS Safety Report 5893718-5 (Version None)
Quarter: 2008Q3

REPORT INFORMATION
  Report Type: 
  Country: None (occurrence: None)
  Receive Date: 20080918
  Receipt Date: 20080903
  Transmission Date: 20090109
  Serious: Yes (Death)
  Sender: FDA-Public Use
  Company Number: 2008S1016113

PATIENT
  Age: 70 Year
  Sex: Female

DRUGS (2)
  1. FLUOXETINE [Suspect]
     Indication: DEPRESSION
     Dosage: 60 MG; ORAL
     Route: 048
     Dates: start: 20070201
  2. LANSOPRAZOLE [Concomitant]

REACTIONS (2)
  - CONFUSIONAL STATE [None]
  - DRUG TOXICITY [None]
